FAERS Safety Report 12177356 (Version 4)
Quarter: 2016Q2

REPORT INFORMATION
  Report Type: Report from Study
  Country: CA (occurrence: CA)
  Receive Date: 20160314
  Receipt Date: 20160616
  Transmission Date: 20160815
  Serious: Yes (Hospitalization, Other)
  Sender: FDA-Public Use
  Company Number: CA-BRISTOL-MYERS SQUIBB COMPANY-BMS-2016-017244

PATIENT
  Age: 64 Year
  Sex: Female

DRUGS (1)
  1. ABATACEPT [Suspect]
     Active Substance: ABATACEPT
     Indication: PRODUCT USED FOR UNKNOWN INDICATION
     Dosage: 125 MG, QWK
     Route: 058
     Dates: start: 20140711

REACTIONS (4)
  - Abdominal abscess [Unknown]
  - Limb operation [Recovering/Resolving]
  - Diverticulitis [Not Recovered/Not Resolved]
  - Small intestinal resection [Unknown]

NARRATIVE: CASE EVENT DATE: 20160211
